FAERS Safety Report 24235061 (Version 2)
Quarter: 2024Q4

REPORT INFORMATION
  Report Type: Spontaneous
  Country: DE (occurrence: DE)
  Receive Date: 20240821
  Receipt Date: 20241220
  Transmission Date: 20250115
  Serious: Yes (Other)
  Sender: ABBVIE
  Company Number: None

PATIENT
  Age: 1 Day
  Sex: Female
  Weight: 2 kg

DRUGS (6)
  1. CITALOPRAM [Suspect]
     Active Substance: CITALOPRAM
     Indication: Exposure during pregnancy
     Dosage: DOSE DESC: 40 [MG/D (UP TO 20 MG/D) ]/ 40 MG/D, 2 WEEKS BEFORE DELIVERY REDUCTION TO 20 MG/D, FOR...
     Route: 064
     Dates: start: 20210823, end: 20220518
  2. CIMZIA [Suspect]
     Active Substance: CERTOLIZUMAB PEGOL
     Indication: Exposure during pregnancy
     Dosage: DOSE DESC: 200 [MG/D (ALLE 2 WK) ]/ BREAK 2 WEEKS BEFORE AND AFTER 3. BIONTECH-VACCINATION (GW 16...
     Route: 064
  3. Comirnaty [Concomitant]
     Indication: Exposure during pregnancy
     Dosage: COMIRNATY MONOVALENT?DURATION: 1 DAY?NOTES: 16.1. - 16.1. GESTATIONAL EXPOSURE: 2ND TRIMESTER?ADD...
     Route: 064
     Dates: start: 20211214, end: 20211214
  4. METHYLDOPA [Concomitant]
     Active Substance: METHYLDOPA
     Indication: Exposure during pregnancy
     Dosage: FORM: UNKNOWN?NOTES: TRIMESTER: UNKNOWN TRIMESTER
     Route: 064
  5. LEVOTHYROXINE SODIUM [Concomitant]
     Active Substance: LEVOTHYROXINE SODIUM
     Indication: Exposure during pregnancy
     Dosage: DAILY DOSE: 75.0 ?G?DURATION: 8 MONTHS 26 DAYS?NOTES: 0. - 38.3. GESTATIONAL WEEK?GESTATIONAL EXP...
     Route: 064
     Dates: start: 20210823, end: 20220518
  6. DIPHTHERIE ADSORBAT IMPFSTOFF [Concomitant]
     Indication: Exposure during pregnancy
     Dosage: DURATION: 1 DAY?GESTATIONAL AGE: 3 TRIMESTER?ADDITIONAL INFO: ROUTE:064 34.4. - 34.4. GESTATIONAL...
     Route: 064
     Dates: start: 20220422, end: 20220422

REACTIONS (4)
  - Neonatal hypoxia [Recovered/Resolved]
  - Small for dates baby [Recovered/Resolved]
  - Respiratory disorder neonatal [Recovered/Resolved]
  - Foetal exposure during pregnancy [Unknown]

NARRATIVE: CASE EVENT DATE: 20220501
